FAERS Safety Report 7656001-3 (Version None)
Quarter: 2011Q3

REPORT INFORMATION
  Report Type: 
  Country: None (occurrence: None)
  Receive Date: 20110804
  Receipt Date: 20110725
  Transmission Date: 20111222
  Serious: Yes (Other)
  Sender: FDA-Public Use
  Company Number: IL-JNJFOC-20110710749

PATIENT
  Age: 28 Year
  Sex: Male

DRUGS (2)
  1. REMICADE [Suspect]
     Indication: CROHN'S DISEASE
     Dosage: 3RD OR 4TH INFUSION
     Route: 042
  2. REMICADE [Suspect]
     Route: 042

REACTIONS (3)
  - INCORRECT DRUG ADMINISTRATION RATE [None]
  - SYNCOPE [None]
  - INFUSION RELATED REACTION [None]
